FAERS Safety Report 19814044 (Version 1)
Quarter: 2021Q3

REPORT INFORMATION
  Report Type: Spontaneous
  Country: US (occurrence: US)
  Receive Date: 20210910
  Receipt Date: 20210910
  Transmission Date: 20211014
  Serious: Yes (Other)
  Sender: FDA-Public Use
  Company Number: None

PATIENT
  Age: 66 Year
  Sex: Male
  Weight: 86 kg

DRUGS (1)
  1. BARICITINIB. [Suspect]
     Active Substance: BARICITINIB
     Indication: COVID-19
     Route: 048
     Dates: start: 20210902, end: 20210909

REACTIONS (4)
  - Peripheral vein occlusion [None]
  - Aspergillus infection [None]
  - Thrombosis [None]
  - Sputum culture positive [None]

NARRATIVE: CASE EVENT DATE: 20210907
